FAERS Safety Report 7498927-X (Version None)
Quarter: 2011Q2

REPORT INFORMATION
  Report Type: 
  Country: None (occurrence: None)
  Receive Date: 20110524
  Receipt Date: 20110425
  Transmission Date: 20111010
  Serious: Yes (Hospitalization)
  Sender: FDA-Public Use
  Company Number: US-BAYER-201034704NA

PATIENT
  Age: 43 Year
  Sex: Female
  Weight: 84 kg

DRUGS (12)
  1. YAZ [Suspect]
     Indication: POLYCYSTIC OVARIES
  2. ASPIRIN [Concomitant]
     Route: 048
  3. BENADRYL [Concomitant]
  4. ACIPHEX [Concomitant]
     Indication: GASTROOESOPHAGEAL REFLUX DISEASE
     Dosage: UNK UNK, HS
     Route: 048
     Dates: start: 20050101, end: 20100101
  5. YAZ [Suspect]
     Indication: CONTRACEPTION
     Dosage: UNK UNK, UNK
     Route: 048
     Dates: start: 20080101, end: 20081015
  6. EFFEXOR [Concomitant]
     Indication: FIBROMYALGIA
     Dosage: DAILY DOSE 150 MG
     Route: 048
     Dates: start: 20050101
  7. TUMS [CALCIUM CARBONATE] [Concomitant]
  8. TRAMADOL HCL [Concomitant]
  9. PAMELOR [Concomitant]
     Route: 048
  10. PROZAC [Concomitant]
  11. NORTRIPTYLINE HCL [Concomitant]
     Indication: FIBROMYALGIA
     Dosage: 100 MG, HS
     Route: 048
     Dates: start: 19960101
  12. VIOXX [Concomitant]

REACTIONS (4)
  - DYSPNOEA [None]
  - DEEP VEIN THROMBOSIS [None]
  - PULMONARY EMBOLISM [None]
  - CHEST DISCOMFORT [None]
